FAERS Safety Report 7222239-2 (Version None)
Quarter: 2011Q1

REPORT INFORMATION
  Report Type: 
  Country: None (occurrence: None)
  Receive Date: 20110112
  Receipt Date: 20110107
  Transmission Date: 20110831
  Serious: Yes (Life-Threatening, Hospitalization, Other)
  Sender: FDA-Public Use
  Company Number: DE-PFIZER INC-2011006279

PATIENT
  Age: 87 Year
  Sex: Female
  Weight: 63 kg

DRUGS (7)
  1. PANTOZOL [Suspect]
     Dosage: 20 MG, UNK
     Route: 048
     Dates: start: 20100824, end: 20100801
  2. CEFAZOLIN [Suspect]
     Dosage: 2 G, 1X/DAY
     Route: 042
     Dates: start: 20100823, end: 20100823
  3. CEFAZOLIN [Suspect]
     Dosage: 2 G, 1X/DAY
     Dates: start: 20100828, end: 20100828
  4. PANTOZOL [Suspect]
     Dosage: 40 MG, UNK
     Route: 048
     Dates: start: 20100901
  5. CEFAZOLIN [Suspect]
     Dosage: 2 G, 2X/DAY
     Dates: start: 20100824, end: 20100827
  6. IBU ^RATIOPHARM^ [Suspect]
     Dosage: 600 MG, 2X/DAY
     Route: 048
     Dates: start: 20100823, end: 20100823
  7. IBU ^RATIOPHARM^ [Suspect]
     Dosage: 600 MG, 4X/DAY
     Dates: start: 20100824, end: 20100826

REACTIONS (1)
  - RENAL FAILURE ACUTE [None]
